FAERS Safety Report 4286952-1 (Version None)
Quarter: 2004Q1

REPORT INFORMATION
  Report Type: 
  Country: None (occurrence: None)
  Receive Date: 20040206
  Receipt Date: 20040114
  Transmission Date: 20041129
  Serious: Yes (Death, Hospitalization)
  Sender: FDA-Public Use
  Company Number: WAES 0401GBR00100

PATIENT
  Age: 80 Year
  Sex: Female
  Weight: 80 kg

DRUGS (4)
  1. ASPIRIN [Concomitant]
     Dates: start: 20030101, end: 20030403
  2. FERROUS SULFATE [Concomitant]
     Indication: ANAEMIA
     Dates: start: 20020901
  3. PANTOPRAZOLE [Concomitant]
     Dates: start: 20030101
  4. VIOXX [Suspect]
     Indication: ABDOMINAL PAIN UPPER
     Route: 048
     Dates: start: 20030326, end: 20030404

REACTIONS (2)
  - FAECES DISCOLOURED [None]
  - GASTROINTESTINAL PERFORATION [None]
